FAERS Safety Report 15019397 (Version 1)
Quarter: 2018Q2

REPORT INFORMATION
  Report Type: Spontaneous
  Country: CZ (occurrence: CZ)
  Receive Date: 20180617
  Receipt Date: 20180617
  Transmission Date: 20180711
  Serious: Yes (Death, Other)
  Sender: FDA-Public Use
  Company Number: PHHY2018CZ021474

PATIENT
  Age: 43 Year
  Sex: Female

DRUGS (7)
  1. CARBOPLATIN. [Suspect]
     Active Substance: CARBOPLATIN
     Dosage: QW
     Route: 065
     Dates: start: 201611
  2. OLAPARIB. [Suspect]
     Active Substance: OLAPARIB
     Indication: OVARIAN EPITHELIAL CANCER
     Dosage: 400 MG, QD
     Route: 065
     Dates: start: 20150921, end: 201610
  3. PACLITAXEL. [Suspect]
     Active Substance: PACLITAXEL
     Dosage: QW
     Route: 065
     Dates: start: 201611
  4. PACLITAXEL. [Suspect]
     Active Substance: PACLITAXEL
     Dosage: 175 MG/M2, Q3W
     Route: 065
     Dates: start: 20150310
  5. CARBOPLATIN. [Suspect]
     Active Substance: CARBOPLATIN
     Indication: OVARIAN EPITHELIAL CANCER
     Dosage: 2 MG/UAC, QW
     Route: 065
  6. PACLITAXEL. [Suspect]
     Active Substance: PACLITAXEL
     Indication: OVARIAN EPITHELIAL CANCER
     Dosage: 90 MG/M2, QW
     Route: 065
  7. CARBOPLATIN. [Suspect]
     Active Substance: CARBOPLATIN
     Dosage: 6 MG/UAC, QW
     Route: 065
     Dates: start: 20150310

REACTIONS (9)
  - Ovarian epithelial cancer [Fatal]
  - Nausea [Not Recovered/Not Resolved]
  - Neutropenia [Unknown]
  - Cachexia [Fatal]
  - Asthenia [Fatal]
  - Malignant neoplasm progression [Fatal]
  - Metastases to spine [Fatal]
  - Fatigue [Fatal]
  - Infusion site reaction [Recovering/Resolving]

NARRATIVE: CASE EVENT DATE: 20150310
